FAERS Safety Report 7870476-6 (Version None)
Quarter: 2011Q4

REPORT INFORMATION
  Report Type: 
  Country: None (occurrence: None)
  Receive Date: 20111029
  Receipt Date: 20110216
  Transmission Date: 20120403
  Serious: Yes (Other)
  Sender: FDA-Public Use
  Company Number: US-AMGEN-USASP2011006850

PATIENT
  Age: 57 Year
  Sex: Female
  Weight: 84.807 kg

DRUGS (2)
  1. METHOTREXATE [Concomitant]
  2. ENBREL [Suspect]
     Indication: RHEUMATOID ARTHRITIS
     Dosage: 50 MG, QWK
     Dates: start: 20101215, end: 20110203

REACTIONS (4)
  - PAIN IN EXTREMITY [None]
  - VASCULITIS [None]
  - SKIN DISCOLOURATION [None]
  - LACERATION [None]
